FAERS Safety Report 7540242-X (Version None)
Quarter: 2011Q2

REPORT INFORMATION
  Report Type: 
  Country: None (occurrence: None)
  Receive Date: 20110610
  Receipt Date: 20110606
  Transmission Date: 20111010
  Serious: Yes (Death, Other)
  Sender: FDA-Public Use
  Company Number: SY-SANOFI-AVENTIS-2011SA034399

PATIENT
  Age: 39 Year
  Sex: Female
  Weight: 76 kg

DRUGS (4)
  1. LOPERAMIDE [Concomitant]
  2. DOCETAXEL [Suspect]
     Indication: BREAST CANCER
     Route: 041
     Dates: start: 20110503, end: 20110503
  3. DOCETAXEL [Suspect]
     Route: 041
     Dates: start: 20110524, end: 20110524
  4. DEXAMETHASONE [Concomitant]
     Indication: PREMEDICATION
     Route: 065

REACTIONS (3)
  - SEPTIC SHOCK [None]
  - LARGE INTESTINE PERFORATION [None]
  - ABDOMINAL PAIN [None]
